FAERS Safety Report 16798561 (Version 1)
Quarter: 2019Q3

REPORT INFORMATION
  Report Type: Spontaneous
  Country: JP (occurrence: JP)
  Receive Date: 20190912
  Receipt Date: 20190912
  Transmission Date: 20191005
  Serious: Yes (Death)
  Sender: FDA-Public Use
  Company Number: JP-ACTELION-A-CH2019-195496

PATIENT
  Age: 39 Year
  Sex: Male

DRUGS (6)
  1. OPSUMIT [Suspect]
     Active Substance: MACITENTAN
     Indication: PULMONARY ARTERIAL HYPERTENSION
     Dosage: 5 MG, QD
     Route: 048
     Dates: start: 20160512, end: 20160825
  2. FUROSEMIDE. [Concomitant]
     Active Substance: FUROSEMIDE
  3. NATRIX [Concomitant]
     Active Substance: INDAPAMIDE
  4. ASPIRIN. [Concomitant]
     Active Substance: ASPIRIN
  5. OPSUMIT [Suspect]
     Active Substance: MACITENTAN
     Dosage: 10 MG, QD
     Route: 048
     Dates: start: 20160825, end: 201908
  6. SELARA [Concomitant]
     Active Substance: EPLERENONE

REACTIONS (5)
  - Circulatory collapse [Fatal]
  - Ascites [Fatal]
  - Thrombosis [Fatal]
  - Cardiac failure [Fatal]
  - Cerebral infarction [Fatal]

NARRATIVE: CASE EVENT DATE: 201908
